FAERS Safety Report 5069963-8 (Version None)
Quarter: 2006Q3

REPORT INFORMATION
  Report Type: 
  Country: None (occurrence: None)
  Receive Date: 20060803
  Receipt Date: 20060727
  Transmission Date: 20061208
  Serious: Yes (Other)
  Sender: FDA-Public Use
  Company Number: US-GLAXOSMITHKLINE-A0613845A

PATIENT
  Age: 48 Year
  Sex: Female

DRUGS (1)
  1. STANBACK HEADACHE POWDER [Suspect]
     Indication: HEADACHE
     Dates: end: 20060724

REACTIONS (13)
  - ANAEMIA [None]
  - ASTHENIA [None]
  - BACTERIAL INFECTION [None]
  - CHILLS [None]
  - DEPENDENCE [None]
  - DRUG WITHDRAWAL SYNDROME [None]
  - DYSKINESIA [None]
  - FEELING COLD [None]
  - HEADACHE [None]
  - INTENTIONAL DRUG MISUSE [None]
  - MALAISE [None]
  - PYREXIA [None]
  - TREMOR [None]
